FAERS Safety Report 8218372-9 (Version None)
Quarter: 2012Q1

REPORT INFORMATION
  Report Type: 
  Country: None (occurrence: None)
  Receive Date: 20120319
  Receipt Date: 20120312
  Transmission Date: 20120608
  Serious: Yes (Death, Hospitalization)
  Sender: FDA-Public Use
  Company Number: US-GLAXOSMITHKLINE-A0969329A

PATIENT
  Age: 67 Year
  Sex: Male

DRUGS (9)
  1. ALBUTEROL [Concomitant]
     Route: 055
  2. MUCINEX [Concomitant]
  3. IPRATROPIUM [Concomitant]
  4. ADVAIR DISKUS 100/50 [Suspect]
     Indication: CHRONIC OBSTRUCTIVE PULMONARY DISEASE
     Dosage: 1PUFF TWICE PER DAY
     Route: 055
  5. VITAMIN [Concomitant]
  6. ASPIRIN [Concomitant]
  7. VENTOLIN [Suspect]
     Indication: BRONCHOSPASM
     Route: 055
  8. METHOCARBAMOL [Concomitant]
  9. NAC DIAGNOSTIC REAGENT [Concomitant]

REACTIONS (5)
  - MALAISE [None]
  - DEATH [None]
  - MYOCARDIAL INFARCTION [None]
  - HAEMORRHAGE [None]
  - BACK PAIN [None]
